FAERS Safety Report 13045403 (Version 1)
Quarter: 2016Q4

REPORT INFORMATION
  Report Type: Spontaneous
  Country: US (occurrence: US)
  Receive Date: 20161219
  Receipt Date: 20161219
  Transmission Date: 20170207
  Serious: No
  Sender: FDA-Public Use
  Company Number: None

PATIENT
  Age: 72 Year
  Sex: Male
  Weight: 116.7 kg

DRUGS (2)
  1. ENOXAPARIN (GENERIC) [Suspect]
     Active Substance: ENOXAPARIN
     Indication: DEEP VEIN THROMBOSIS
     Route: 058
     Dates: start: 20161109, end: 20161124
  2. ENOXAPARIN (GENERIC) [Suspect]
     Active Substance: ENOXAPARIN
     Indication: DERMATITIS BULLOUS
     Route: 058
     Dates: start: 20161109, end: 20161124

REACTIONS (3)
  - Dermatitis bullous [None]
  - Scab [None]
  - Haemorrhage [None]

NARRATIVE: CASE EVENT DATE: 20161201
